FAERS Safety Report 5081909-5 (Version None)
Quarter: 2006Q3

REPORT INFORMATION
  Report Type: 
  Country: None (occurrence: None)
  Receive Date: 20060816
  Receipt Date: 20060810
  Transmission Date: 20061208
  Serious: Yes (Life-Threatening, Hospitalization, Disabling, Other)
  Sender: FDA-Public Use
  Company Number: US-MERCK-0608USA02467

PATIENT
  Age: 76 Year
  Sex: Female

DRUGS (8)
  1. VYTORIN [Suspect]
     Indication: BLOOD CHOLESTEROL
     Route: 048
     Dates: start: 20050101, end: 20060701
  2. PROCRIT [Concomitant]
     Route: 065
  3. FERROUS SULFATE [Concomitant]
     Route: 065
  4. ROCALTROL [Concomitant]
     Route: 065
  5. FUROSEMIDE [Concomitant]
     Route: 065
  6. DIOVAN [Concomitant]
     Route: 065
  7. HIGROTON [Concomitant]
     Route: 065
  8. INSULIN [Concomitant]
     Route: 065

REACTIONS (1)
  - ANAEMIA [None]
